FAERS Safety Report 9734072 (Version 1)
Quarter: 2013Q4

REPORT INFORMATION
  Report Type: Report from Study
  Country: ZA (occurrence: ZA)
  Receive Date: 20131205
  Receipt Date: 20131205
  Transmission Date: 20140711
  Serious: Yes (Death)
  Sender: FDA-Public Use
  Company Number: ZA-GLAXOSMITHKLINE-B0950694A

PATIENT
  Age: 56 Year
  Sex: Male
  Weight: 98 kg

DRUGS (1)
  1. OFATUMUMAB [Suspect]
     Indication: CHRONIC LYMPHOCYTIC LEUKAEMIA
     Dosage: 2000MG PER DAY
     Route: 042
     Dates: start: 201310, end: 20131113

REACTIONS (5)
  - Cardiac arrest [Fatal]
  - Myocardial infarction [Unknown]
  - Anaemia [Unknown]
  - Thrombocytopenia [Unknown]
  - Splenomegaly [Unknown]
